FAERS Safety Report 7211651-3 (Version None)
Quarter: 2011Q1

REPORT INFORMATION
  Report Type: 
  Country: None (occurrence: None)
  Receive Date: 20110105
  Receipt Date: 20101223
  Transmission Date: 20110831
  Serious: Yes (Hospitalization)
  Sender: FDA-Public Use
  Company Number: GB-MYLANLABS-2010S1023668

PATIENT
  Age: 33 Year
  Sex: Male

DRUGS (3)
  1. LOSARTAN POTASSIUM [Concomitant]
     Dosage: LOSARTAN 100MG OD
     Route: 065
  2. ALLOPURINOL [Suspect]
     Indication: HYPERURICAEMIA
     Dosage: ALLOPURINOL 300MG OD
     Route: 065
  3. LISINOPRIL [Concomitant]
     Dosage: LISINOPRIL 20MG OD
     Route: 065

REACTIONS (7)
  - DRUG RASH WITH EOSINOPHILIA AND SYSTEMIC SYMPTOMS [None]
  - TACHYPNOEA [None]
  - PERIORBITAL OEDEMA [None]
  - HYPOTENSION [None]
  - LOCAL SWELLING [None]
  - MALAISE [None]
  - TACHYCARDIA [None]
